FAERS Safety Report 8320214-8 (Version None)
Quarter: 2012Q2

REPORT INFORMATION
  Report Type: 
  Country: None (occurrence: None)
  Receive Date: 20120430
  Receipt Date: 20120418
  Transmission Date: 20120825
  Serious: Yes (Other)
  Sender: FDA-Public Use
  Company Number: US-BIOGENIDEC-2012BI009687

PATIENT
  Age: 69 Year
  Sex: Male
  Weight: 109 kg

DRUGS (14)
  1. BACLOFEN [Concomitant]
     Indication: MUSCLE SPASTICITY
     Route: 048
  2. FLAXSEED OIL [Concomitant]
  3. GLYBURIDE [Concomitant]
     Route: 048
  4. AMPYRA [Concomitant]
     Indication: GAIT DISTURBANCE
  5. TYSABRI [Suspect]
     Indication: MULTIPLE SCLEROSIS
     Route: 042
     Dates: start: 20070219, end: 20120224
  6. METHYLPHENIDATE [Concomitant]
     Indication: FATIGUE
     Route: 048
  7. GLYBURIDE [Concomitant]
     Route: 048
  8. NIACIN [Concomitant]
     Route: 048
  9. LISINOPRIL [Concomitant]
     Route: 048
  10. VENLAFAXINE [Concomitant]
     Route: 048
  11. ATORVASTATIN CALCIUM [Concomitant]
     Route: 048
  12. METHYLPHENIDATE [Concomitant]
     Indication: HYPERSOMNIA
     Route: 048
  13. PIOGLITAZONE [Concomitant]
     Route: 048
  14. ASPIRIN [Concomitant]
     Route: 048

REACTIONS (1)
  - PROGRESSIVE MULTIFOCAL LEUKOENCEPHALOPATHY [None]
